FAERS Safety Report 15209008 (Version 1)
Quarter: 2018Q3

REPORT INFORMATION
  Report Type: Spontaneous
  Country: US (occurrence: US)
  Receive Date: 20180629
  Receipt Date: 20180629
  Transmission Date: 20181010
  Serious: No
  Sender: FDA-Public Use
  Company Number: None

PATIENT
  Age: 64 Year
  Sex: Female

DRUGS (6)
  1. FOLIC ACID. [Concomitant]
     Active Substance: FOLIC ACID
  2. CALCIUM [Concomitant]
     Active Substance: CALCIUM
  3. ASPIRIN LOW DOSE [Concomitant]
     Active Substance: ASPIRIN
  4. METHOTREXATE. [Concomitant]
     Active Substance: METHOTREXATE
  5. OCALIVA [Suspect]
     Active Substance: OBETICHOLIC ACID
     Indication: PRIMARY BILIARY CHOLANGITIS
     Route: 048
     Dates: start: 20180519
  6. URSODIOL. [Concomitant]
     Active Substance: URSODIOL

REACTIONS (1)
  - Pruritus [None]

NARRATIVE: CASE EVENT DATE: 201806
